FAERS Safety Report 17441668 (Version 4)
Quarter: 2020Q2

REPORT INFORMATION
  Report Type: Spontaneous
  Country: US (occurrence: US)
  Receive Date: 20200220
  Receipt Date: 20200402
  Transmission Date: 20200713
  Serious: No
  Sender: FDA-Public Use
  Company Number: US-PFIZER INC-2020076164

PATIENT
  Age: 60 Year
  Sex: Female

DRUGS (1)
  1. XELJANZ XR [Suspect]
     Active Substance: TOFACITINIB CITRATE
     Indication: RHEUMATOID ARTHRITIS
     Dosage: 11 MG, 1X/DAY
     Route: 048
     Dates: start: 202002, end: 202002

REACTIONS (12)
  - Upper respiratory tract infection [Unknown]
  - Musculoskeletal stiffness [Unknown]
  - Diarrhoea [Recovered/Resolved]
  - Aphonia [Unknown]
  - Rash [Recovered/Resolved]
  - Pyrexia [Not Recovered/Not Resolved]
  - Gastroenteritis viral [Recovered/Resolved]
  - Influenza like illness [Recovered/Resolved]
  - Vomiting [Unknown]
  - Cough [Unknown]
  - Dysphagia [Recovered/Resolved]
  - Pain [Unknown]

NARRATIVE: CASE EVENT DATE: 2020
